FAERS Safety Report 8036911-8 (Version None)
Quarter: 2012Q1

REPORT INFORMATION
  Report Type: 
  Country: None (occurrence: None)
  Receive Date: 20120111
  Receipt Date: 20120105
  Transmission Date: 20120608
  Serious: No
  Sender: FDA-Public Use
  Company Number: US-PFIZER INC-2012004839

PATIENT
  Sex: Male
  Weight: 88.435 kg

DRUGS (1)
  1. TOVIAZ [Suspect]
     Indication: PROSTATIC DISORDER
     Dosage: 12 MG, UNK
     Route: 048

REACTIONS (1)
  - PROSTATIC DISORDER [None]
